FAERS Safety Report 18163073 (Version 1)
Quarter: 2020Q3

REPORT INFORMATION
  Report Type: Spontaneous
  Country: US (occurrence: US)
  Receive Date: 20200818
  Receipt Date: 20200818
  Transmission Date: 20201103
  Serious: No
  Sender: FDA-Public Use
  Company Number: US-ASTRAZENECA-2020SE93386

PATIENT
  Age: 841 Month
  Sex: Female
  Weight: 62.1 kg

DRUGS (5)
  1. FASENRA [Suspect]
     Active Substance: BENRALIZUMAB
     Indication: ASTHMA
     Route: 058
     Dates: start: 202004
  2. PANADAY [Concomitant]
     Indication: EYE DISORDER
     Route: 047
  3. FASENRA [Suspect]
     Active Substance: BENRALIZUMAB
     Indication: SINUSITIS
     Route: 058
     Dates: start: 202004
  4. HYDROCODONE [Concomitant]
     Active Substance: HYDROCODONE
     Indication: RHEUMATOID ARTHRITIS
     Dosage: AS REQUIRED
  5. ALPRAZOLAM. [Concomitant]
     Active Substance: ALPRAZOLAM
     Indication: ANXIETY

REACTIONS (6)
  - Lacrimation increased [Not Recovered/Not Resolved]
  - Weight increased [Unknown]
  - Eye pruritus [Not Recovered/Not Resolved]
  - Dry eye [Not Recovered/Not Resolved]
  - Eye pain [Not Recovered/Not Resolved]
  - Memory impairment [Unknown]

NARRATIVE: CASE EVENT DATE: 202001
